APPROVED DRUG PRODUCT: SUPRAX
Active Ingredient: CEFIXIME
Strength: 100MG/5ML **Federal Register determination that product was not discontinued or withdrawn for safety or effectiveness reasons**
Dosage Form/Route: FOR SUSPENSION;ORAL
Application: N050622 | Product #001
Applicant: LEDERLE LABORATORIES DIV AMERICAN CYANAMID CO
Approved: Apr 28, 1989 | RLD: Yes | RS: No | Type: DISCN